FAERS Safety Report 7672615-9 (Version None)
Quarter: 2011Q3

REPORT INFORMATION
  Report Type: 
  Country: None (occurrence: None)
  Receive Date: 20110809
  Receipt Date: 20110801
  Transmission Date: 20111222
  Serious: Yes (Hospitalization)
  Sender: FDA-Public Use
  Company Number: BE-BAYER-2011-067376

PATIENT
  Sex: Male

DRUGS (2)
  1. ULTRAVIST 150 [Suspect]
     Indication: ARTHROGRAM
     Dosage: 10 ML, ONCE
     Route: 014
     Dates: start: 20110801, end: 20110801
  2. ADRENALIN IN OIL INJ [Concomitant]
     Indication: ARTHROGRAM
     Dosage: 1 ML, QD
     Route: 014
     Dates: start: 20110801, end: 20110801

REACTIONS (2)
  - ARTHRITIS ALLERGIC [None]
  - PAIN [None]
